FAERS Safety Report 14578988 (Version 1)
Quarter: 2018Q1

REPORT INFORMATION
  Report Type: Spontaneous
  Country: IT (occurrence: IT)
  Receive Date: 20180227
  Receipt Date: 20180227
  Transmission Date: 20180509
  Serious: Yes (Hospitalization)
  Sender: FDA-Public Use
  Company Number: IT-ELI_LILLY_AND_COMPANY-IT201802009485

PATIENT
  Age: 59 Year
  Sex: Female
  Weight: 160 kg

DRUGS (2)
  1. ABRAXANE [Concomitant]
     Active Substance: PACLITAXEL
     Indication: PANCREATIC CARCINOMA
     Dosage: 152 MG, UNKNOWN
     Route: 042
     Dates: start: 20170526, end: 20170601
  2. GEMZAR [Suspect]
     Active Substance: GEMCITABINE HYDROCHLORIDE
     Indication: PANCREATIC CARCINOMA
     Dosage: 1216 MG, CYCLICAL
     Route: 042
     Dates: start: 20170526, end: 20170601

REACTIONS (5)
  - Tremor [Recovered/Resolved]
  - Crying [Recovered/Resolved]
  - Suffocation feeling [Recovered/Resolved]
  - Feeling jittery [Recovered/Resolved]
  - Off label use [Unknown]

NARRATIVE: CASE EVENT DATE: 20170526
